FAERS Safety Report 6879610-8 (Version None)
Quarter: 2010Q3

REPORT INFORMATION
  Report Type: 
  Country: None (occurrence: None)
  Receive Date: 20100727
  Receipt Date: 20100719
  Transmission Date: 20110219
  Serious: Yes (Life-Threatening, Other)
  Sender: FDA-Public Use
  Company Number: DE-ABBOTT-10P-062-0652679-00

PATIENT
  Sex: Female
  Weight: 96 kg

DRUGS (7)
  1. HUMIRA [Suspect]
     Indication: PSORIASIS
     Route: 058
     Dates: start: 20090204, end: 20090923
  2. HUMIRA [Suspect]
     Route: 058
     Dates: start: 20090923, end: 20091104
  3. HUMIRA [Suspect]
     Route: 058
     Dates: start: 20091104, end: 20100501
  4. MTX [Concomitant]
     Indication: PSORIASIS
     Dates: end: 20090201
  5. MTX [Concomitant]
     Dosage: 10 MG WEEKLY
     Dates: start: 20061215, end: 20081217
  6. LOCAL PUVA THERAPY [Concomitant]
     Indication: PSORIASIS
     Dates: start: 20060522, end: 20060707
  7. FUMADERM [Concomitant]
     Indication: PSORIASIS
     Dates: start: 20060710, end: 20061004

REACTIONS (6)
  - LYMPHADENOPATHY [None]
  - METASTASES TO CENTRAL NERVOUS SYSTEM [None]
  - METASTASES TO LIVER [None]
  - METASTASES TO LUNG [None]
  - METASTASES TO LYMPH NODES [None]
  - PSORIASIS [None]
